FAERS Safety Report 7609652-6 (Version None)
Quarter: 2011Q3

REPORT INFORMATION
  Report Type: 
  Country: None (occurrence: None)
  Receive Date: 20110714
  Receipt Date: 20110711
  Transmission Date: 20111222
  Serious: Yes (Disabling)
  Sender: FDA-Public Use
  Company Number: JP-PFIZER INC-2011155096

PATIENT
  Age: 78 Year
  Sex: Male

DRUGS (1)
  1. PREGABALIN [Suspect]
     Indication: POST HERPETIC NEURALGIA
     Dosage: 150 MG, 2X/DAY
     Route: 048
     Dates: start: 20110602, end: 20110627

REACTIONS (3)
  - GENERALISED OEDEMA [None]
  - RASH [None]
  - DIZZINESS [None]
